FAERS Safety Report 7801436-9 (Version None)
Quarter: 2011Q4

REPORT INFORMATION
  Report Type: 
  Country: None (occurrence: None)
  Receive Date: 20111005
  Receipt Date: 20110921
  Transmission Date: 20120403
  Serious: Yes (Hospitalization)
  Sender: FDA-Public Use
  Company Number: 1000024341

PATIENT
  Age: 74 Year
  Sex: Male

DRUGS (4)
  1. ATORVASTATIN CALCIUM [Suspect]
  2. ATENOLOL [Suspect]
     Dosage: 50 MG (1 TIME),ORAL
     Route: 048
     Dates: end: 20061106
  3. ASPIRIN [Suspect]
     Dosage: 150 MG (1 TIME)
  4. LEXAPRO [Suspect]
     Dosage: 10 MG (1 TIME)
     Dates: start: 20061003, end: 20061028

REACTIONS (4)
  - CIRCULATORY COLLAPSE [None]
  - ELECTROCARDIOGRAM QT PROLONGED [None]
  - FALL [None]
  - CONTUSION [None]
